FAERS Safety Report 17263923 (Version 1)
Quarter: 2019Q4

REPORT INFORMATION
  Report Type: Spontaneous
  Country: US (occurrence: US)
  Receive Date: 20191219
  Receipt Date: 20191219
  Transmission Date: 20200122
  Serious: Yes (Hospitalization)
  Sender: FDA-Public Use
  Company Number: None

PATIENT
  Age: 44 Year
  Sex: Female

DRUGS (17)
  1. HYDROCO/APAP [Concomitant]
     Active Substance: ACETAMINOPHEN\HYDROCODONE
  2. ENBREL [Suspect]
     Active Substance: ETANERCEPT
     Indication: ANKYLOSING SPONDYLITIS
     Route: 058
     Dates: start: 20190830
  3. AMITRIPTYLIN [Concomitant]
     Active Substance: AMITRIPTYLINE
  4. MOVANTIK [Concomitant]
     Active Substance: NALOXEGOL OXALATE
  5. HYDROCHLOROT [Concomitant]
     Active Substance: HYDROCHLOROTHIAZIDE
  6. METHOCARBAM [Concomitant]
     Active Substance: METHOCARBAMOL
  7. METHOTREXATE. [Concomitant]
     Active Substance: METHOTREXATE
  8. LEVOCETIRIZI [Concomitant]
  9. DOK [Concomitant]
     Active Substance: DOCUSATE SODIUM
  10. PANTOPRAZOLE [Concomitant]
     Active Substance: PANTOPRAZOLE
  11. ENBREL SRCLK INJ [Concomitant]
  12. LINZESS [Concomitant]
     Active Substance: LINACLOTIDE
  13. DULOXETINE. [Concomitant]
     Active Substance: DULOXETINE
  14. POLYETH GLYC POW [Concomitant]
  15. VITAMIN D3 [Concomitant]
     Active Substance: CHOLECALCIFEROL
  16. METOPROL TAR [Concomitant]
  17. FOLIC ACID. [Concomitant]
     Active Substance: FOLIC ACID

REACTIONS (2)
  - Surgery [None]
  - Therapy cessation [None]

NARRATIVE: CASE EVENT DATE: 20191218
